FAERS Safety Report 6766964-6 (Version None)
Quarter: 2010Q2

REPORT INFORMATION
  Report Type: 
  Country: None (occurrence: None)
  Receive Date: 20100611
  Receipt Date: 20100604
  Transmission Date: 20101027
  Serious: Yes (Hospitalization)
  Sender: FDA-Public Use
  Company Number: BE-ABBOTT-10P-013-0639306-00

PATIENT
  Sex: Female
  Weight: 86.4 kg

DRUGS (4)
  1. HUMIRA [Suspect]
     Indication: PSORIATIC ARTHROPATHY
     Dates: start: 20090301
  2. HUMIRA [Suspect]
  3. HUMIRA [Suspect]
  4. MEDROL [Concomitant]
     Indication: STEROID THERAPY
     Dosage: DAILY DOSE: 8MG

REACTIONS (1)
  - TYPE 2 DIABETES MELLITUS [None]
